FAERS Safety Report 9132223 (Version 1)
Quarter: 2013Q1

REPORT INFORMATION
  Report Type: Spontaneous
  Country: GB (occurrence: GB)
  Receive Date: 20130107
  Receipt Date: 20130107
  Transmission Date: 20140127
  Serious: Yes (Other)
  Sender: FDA-Public Use
  Company Number: GB-TEVA-378331ISR

PATIENT
  Age: 44 Year
  Sex: Female

DRUGS (5)
  1. ENALAPRIL [Suspect]
     Indication: HYPERTENSION
     Dosage: 40MG OD
     Route: 048
     Dates: start: 20120201
  2. FUROSEMIDE [Concomitant]
     Indication: HYPERTENSION
     Route: 048
     Dates: start: 20110630
  3. ADALAT LA [Concomitant]
     Indication: HYPERTENSION
     Route: 048
     Dates: start: 20070802
  4. LABETALOL [Concomitant]
     Indication: HYPERTENSION
     Route: 048
     Dates: start: 20081112
  5. SIMVASTATIN [Concomitant]
     Indication: TRANSIENT ISCHAEMIC ATTACK
     Route: 048
     Dates: start: 20120301

REACTIONS (1)
  - Onycholysis [Not Recovered/Not Resolved]
